FAERS Safety Report 4302445-7 (Version None)
Quarter: 2004Q1

REPORT INFORMATION
  Report Type: 
  Country: None (occurrence: None)
  Receive Date: 20040220
  Receipt Date: 20040209
  Transmission Date: 20041129
  Serious: Yes (Hospitalization, Disabling)
  Sender: FDA-Public Use
  Company Number: APCDSS2002000915

PATIENT
  Age: 32 Year
  Sex: Male
  Weight: 62 kg

DRUGS (11)
  1. REMICADE [Suspect]
     Indication: CROHN'S DISEASE
     Dosage: 300 MG, 1 IN 1 AS NECESSARY, INTRAVENOUS DRIP
     Route: 041
     Dates: start: 20020812, end: 20020812
  2. REMICADE [Suspect]
     Indication: CROHN'S DISEASE
     Dosage: 300 MG, 1 IN 1 AS NECESSARY, INTRAVENOUS DRIP
     Route: 041
     Dates: start: 20021119, end: 20021119
  3. PENTASA [Suspect]
     Indication: CROHN'S DISEASE
     Dosage: 3 G, ORAL
     Route: 048
     Dates: start: 19960825, end: 20030228
  4. PENTASA [Suspect]
     Indication: CROHN'S DISEASE
     Dosage: 3 G, ORAL
     Route: 048
     Dates: start: 20030304
  5. FAMOTIDINE [Suspect]
     Dosage: 40 MG, ORAL
     Route: 048
     Dates: start: 19960825, end: 20030228
  6. FAMOTIDINE [Suspect]
     Dosage: 40 MG, ORAL
     Route: 048
     Dates: start: 20030311
  7. RYTHMOL [Suspect]
     Indication: INSOMNIA
     Dosage: 2 MG, ORAL
     Route: 048
     Dates: start: 19960825, end: 20030228
  8. RYTHMOL [Suspect]
     Indication: INSOMNIA
     Dosage: 2 MG, ORAL
     Route: 048
     Dates: start: 20030311
  9. PREDNISOLONE [Concomitant]
  10. ELENTAL (ELENTAL) [Concomitant]
  11. ENTERAL NUTRITION (SOLUTIONS FOR PARENTERAL NUTRITION) [Concomitant]

REACTIONS (4)
  - HEPATIC CIRRHOSIS [None]
  - HYPERPHAGIA [None]
  - THROMBOCYTOPENIA [None]
  - TREATMENT NONCOMPLIANCE [None]
